FAERS Safety Report 18044073 (Version 1)
Quarter: 2020Q3

REPORT INFORMATION
  Report Type: Spontaneous
  Country: US (occurrence: US)
  Receive Date: 20200718
  Receipt Date: 20200718
  Transmission Date: 20201103
  Serious: Yes (Hospitalization)
  Sender: FDA-Public Use
  Company Number: None

PATIENT
  Age: 2 Year
  Sex: Male
  Weight: 12.4 kg

DRUGS (6)
  1. DEXAMETHASONE. [Suspect]
     Active Substance: DEXAMETHASONE
     Dates: end: 20200613
  2. ONCASPAR [Suspect]
     Active Substance: PEGASPARGASE
     Dates: end: 20200611
  3. DAUNORUBICIN [Suspect]
     Active Substance: DAUNORUBICIN
     Dates: end: 20200611
  4. METHOTREXATE. [Suspect]
     Active Substance: METHOTREXATE
     Dates: end: 20200611
  5. CYTARABINE. [Suspect]
     Active Substance: CYTARABINE
     Dates: end: 20200606
  6. VINCRISTINE SULFATE. [Suspect]
     Active Substance: VINCRISTINE SULFATE
     Dates: end: 20200611

REACTIONS (5)
  - Infective myositis [None]
  - Staphylococcal infection [None]
  - Culture positive [None]
  - Staphylococcal bacteraemia [None]
  - Febrile neutropenia [None]

NARRATIVE: CASE EVENT DATE: 20200614
